FAERS Safety Report 18298644 (Version 1)
Quarter: 2020Q3

REPORT INFORMATION
  Report Type: Spontaneous
  Country: CN (occurrence: CN)
  Receive Date: 20200922
  Receipt Date: 20200922
  Transmission Date: 20201103
  Serious: Yes (Hospitalization)
  Sender: FDA-Public Use
  Company Number: CN-PFIZER INC-2020361681

PATIENT
  Age: 77 Year
  Sex: Female
  Weight: 58 kg

DRUGS (4)
  1. GLUCOSE [Concomitant]
     Active Substance: DEXTROSE
     Indication: VEHICLE SOLUTION USE
     Dosage: 500 ML, 1X/DAY
     Route: 041
     Dates: start: 20200902, end: 20200908
  2. CYTARABINE. [Suspect]
     Active Substance: CYTARABINE
     Indication: ACUTE LEUKAEMIA
     Dosage: 100 MG, CYCLIC (ONCE IN EVERY 4 DAYS) (CIV Q96HX2)
     Route: 041
     Dates: start: 20200902
  3. HOMOHARRINGTONINE [Suspect]
     Active Substance: OMACETAXINE MEPESUCCINATE
     Indication: ACUTE LEUKAEMIA
     Dosage: 1 MG, CYCLIC (ONCE DAILY, 1 MG D1?7)
     Route: 041
     Dates: start: 20200902
  4. SODIUM CHLORIDE. [Concomitant]
     Active Substance: SODIUM CHLORIDE
     Indication: VEHICLE SOLUTION USE
     Dosage: 100 ML, CYCLIC (ONCE IN EVERY 4 DAYS)
     Route: 041
     Dates: start: 20200902, end: 20200909

REACTIONS (4)
  - Full blood count decreased [Not Recovered/Not Resolved]
  - Pyrexia [Unknown]
  - Nausea [Unknown]
  - Fatigue [Unknown]

NARRATIVE: CASE EVENT DATE: 202009
